FAERS Safety Report 7042861-6 (Version None)
Quarter: 2010Q4

REPORT INFORMATION
  Report Type: 
  Country: None (occurrence: None)
  Receive Date: 20101013
  Receipt Date: 20100113
  Transmission Date: 20110411
  Serious: No
  Sender: FDA-Public Use
  Company Number: US-ASTRAZENECA-2010SE01527

PATIENT
  Age: 60 Year
  Sex: Female
  Weight: 85.3 kg

DRUGS (2)
  1. SYMBICORT [Suspect]
     Indication: CHRONIC OBSTRUCTIVE PULMONARY DISEASE
     Dosage: 160/4.5 MCG 2 PUFFS
     Route: 055
     Dates: start: 20091001
  2. SYMBICORT [Suspect]
     Indication: ATELECTASIS
     Dosage: 160/4.5 MCG 2 PUFFS
     Route: 055
     Dates: start: 20091001

REACTIONS (9)
  - ARTHRITIS [None]
  - BACK DISORDER [None]
  - CONTUSION [None]
  - GAIT DISTURBANCE [None]
  - GENERAL PHYSICAL HEALTH DETERIORATION [None]
  - INFLAMMATION [None]
  - LIMB DISCOMFORT [None]
  - MUSCLE SPASMS [None]
  - WEIGHT INCREASED [None]
